FAERS Safety Report 9409575 (Version 1)
Quarter: 2013Q3

REPORT INFORMATION
  Report Type: Spontaneous
  Country: DE (occurrence: DE)
  Receive Date: 20130719
  Receipt Date: 20130719
  Transmission Date: 20140515
  Serious: Yes (Other)
  Sender: FDA-Public Use
  Company Number: PHHY2013DE055249

PATIENT
  Sex: Male
  Weight: 69 kg

DRUGS (8)
  1. MYFORTIC [Suspect]
     Indication: GRAFT VERSUS HOST DISEASE
     Dosage: UNK
     Route: 048
     Dates: start: 20130402
  2. PREDNISOLONE [Suspect]
     Dosage: TABLET OF 20MG AT A DOSE OF HALF TABLET PER DAY
  3. TAMSULOSIN [Concomitant]
     Dosage: 0.4 MG, QD
  4. HYDROCHLOROTHIAZIDE [Concomitant]
     Dosage: 0.5 DF, UNK
  5. TORSEMIDE [Concomitant]
     Dosage: 0.5 DF, UNK
  6. VALSARTAN [Concomitant]
     Dosage: 0.5 DF, UNK
  7. VIGANTOLETTEN [Concomitant]
     Dosage: 1000 IU, QD
  8. PANTOZOL [Concomitant]
     Dosage: 20 MG, QD

REACTIONS (3)
  - Lymphocyte count decreased [Unknown]
  - CD4 lymphocytes decreased [Unknown]
  - Infection [Unknown]
